FAERS Safety Report 6014980-4 (Version None)
Quarter: 2008Q4

REPORT INFORMATION
  Report Type: 
  Country: None (occurrence: None)
  Receive Date: 20081219
  Receipt Date: 20081212
  Transmission Date: 20090506
  Serious: Yes (Hospitalization)
  Sender: FDA-Public Use
  Company Number: US-GENENTECH-273798

PATIENT
  Sex: Male

DRUGS (13)
  1. RITUXAN [Suspect]
     Indication: DIFFUSE LARGE B-CELL LYMPHOMA
     Dosage: 375 MG/M2, Q2W
     Route: 042
     Dates: start: 20080320
  2. ENZASTAURIN [Suspect]
     Indication: DIFFUSE LARGE B-CELL LYMPHOMA
     Dosage: 500 MG, QD
     Route: 048
     Dates: start: 20080320
  3. GEMCITABINE HCL [Suspect]
     Indication: DIFFUSE LARGE B-CELL LYMPHOMA
     Dosage: 1000 MG/M2, Q2W
     Route: 042
     Dates: start: 20080321
  4. OXALIPLATIN [Suspect]
     Indication: DIFFUSE LARGE B-CELL LYMPHOMA
     Dosage: UNK
     Route: 042
     Dates: start: 20080321
  5. BACTRIM [Concomitant]
     Indication: PROPHYLAXIS
     Dosage: UNK
     Dates: start: 20080321
  6. ACETAMINOPHEN [Concomitant]
     Indication: PAIN
     Dosage: UNK
     Dates: start: 20080320
  7. ZELITREX [Concomitant]
     Indication: PROPHYLAXIS
     Dosage: UNK
     Dates: start: 20080321
  8. ACETORPHAN [Concomitant]
     Indication: CONSTIPATION
     Dosage: UNK
     Dates: start: 20081120
  9. LYRICA [Concomitant]
     Indication: NEUROPATHY PERIPHERAL
     Dosage: UNK
     Dates: start: 20080625
  10. CLONAZEPAM [Concomitant]
     Indication: NEUROPATHY PERIPHERAL
     Dosage: UNK
     Dates: start: 20080716
  11. AMITRIPTYLINE HCL [Concomitant]
     Indication: NEUROPATHY PERIPHERAL
     Dosage: UNK
     Dates: start: 20081120
  12. NEFOPAM [Concomitant]
     Indication: NEURALGIA
     Dosage: UNK
     Dates: start: 20081120
  13. TRIMEBUTINE [Concomitant]
     Indication: DRUG USE FOR UNKNOWN INDICATION
     Dosage: UNK
     Dates: start: 20081016

REACTIONS (1)
  - GENERAL PHYSICAL HEALTH DETERIORATION [None]
